FAERS Safety Report 19519105 (Version 1)
Quarter: 2021Q3

REPORT INFORMATION
  Report Type: Spontaneous
  Country: US (occurrence: US)
  Receive Date: 20210711
  Receipt Date: 20210711
  Transmission Date: 20211014
  Serious: Yes (Life-Threatening)
  Sender: FDA-Public Use
  Company Number: None

PATIENT
  Age: 22 Year
  Sex: Female
  Weight: 101.15 kg

DRUGS (1)
  1. KYLEENA [Suspect]
     Active Substance: LEVONORGESTREL

REACTIONS (5)
  - Tinnitus [None]
  - Hysterectomy [None]
  - Device dislocation [None]
  - Blindness transient [None]
  - Vaginal haemorrhage [None]

NARRATIVE: CASE EVENT DATE: 20210122
